FAERS Safety Report 16213417 (Version 5)
Quarter: 2019Q2

REPORT INFORMATION
  Report Type: Spontaneous
  Country: US (occurrence: US)
  Receive Date: 20190418
  Receipt Date: 20190626
  Transmission Date: 20190711
  Serious: Yes (Hospitalization)
  Sender: FDA-Public Use
  Company Number: US-ASTRAZENECA-2019SE56709

PATIENT
  Age: 25480 Day
  Sex: Female
  Weight: 75.3 kg

DRUGS (2)
  1. SYMBICORT [Suspect]
     Active Substance: BUDESONIDE\FORMOTEROL FUMARATE DIHYDRATE
     Indication: ASTHMA
     Dosage: 160/4.5MCG, 2 PUFFS 2 TIMES A DAY
     Route: 055
     Dates: start: 20190320
  2. SYMBICORT [Suspect]
     Active Substance: BUDESONIDE\FORMOTEROL FUMARATE DIHYDRATE
     Indication: ASTHMA
     Dosage: 160/4.5MCG, 2 PUFFS 2 TIMES A DAY
     Route: 055
     Dates: start: 20190410

REACTIONS (6)
  - Product taste abnormal [Not Recovered/Not Resolved]
  - Product dose omission [Recovered/Resolved]
  - Intentional device misuse [Not Recovered/Not Resolved]
  - Nausea [Not Recovered/Not Resolved]
  - Device failure [Unknown]
  - Influenza [Recovered/Resolved]

NARRATIVE: CASE EVENT DATE: 20190320
